FAERS Safety Report 8392641-4 (Version None)
Quarter: 2012Q2

REPORT INFORMATION
  Report Type: 
  Country: None (occurrence: None)
  Receive Date: 20120529
  Receipt Date: 20120516
  Transmission Date: 20120825
  Serious: Yes (Hospitalization)
  Sender: FDA-Public Use
  Company Number: US-VIROPHARMA INCORPORATED-20120504CINRY2942

PATIENT
  Sex: Female
  Weight: 94 kg

DRUGS (3)
  1. CINRYZE [Suspect]
     Indication: HEREDITARY ANGIOEDEMA
     Dates: start: 20101101
  2. NORETHINDRONE [Concomitant]
     Indication: MENSTRUAL CYCLE MANAGEMENT
     Dosage: UNKNOWN
     Route: 065
  3. BENTYL [Concomitant]
     Indication: PRODUCT USED FOR UNKNOWN INDICATION
     Dosage: UNKNOWN
     Route: 065

REACTIONS (3)
  - DEVICE RELATED INFECTION [None]
  - DRUG DOSE OMISSION [None]
  - HEREDITARY ANGIOEDEMA [None]
